FAERS Safety Report 14368417 (Version 1)
Quarter: 2018Q1

REPORT INFORMATION
  Report Type: Spontaneous
  Country: CN (occurrence: CN)
  Receive Date: 20180109
  Receipt Date: 20180109
  Transmission Date: 20180509
  Serious: Yes (Other)
  Sender: FDA-Public Use
  Company Number: CN-PURDUE PHARMA-GBR-2017-0052195

PATIENT
  Age: 72 Year
  Sex: Male
  Weight: 46 kg

DRUGS (2)
  1. MORPHINE SULFATE. [Suspect]
     Active Substance: MORPHINE SULFATE
     Indication: ANALGESIC THERAPY
     Dosage: 60 MG, Q12H
     Route: 048
     Dates: start: 20171020
  2. OXYCODONE HYDROCHLORIDE. [Suspect]
     Active Substance: OXYCODONE HYDROCHLORIDE
     Indication: ANALGESIC THERAPY
     Dosage: 50 MG, Q12H
     Route: 048
     Dates: start: 20171010, end: 20171020

REACTIONS (7)
  - Speech disorder [Recovering/Resolving]
  - Sleep disorder [Recovering/Resolving]
  - Dysphoria [Recovering/Resolving]
  - Ischaemic cerebral infarction [Recovering/Resolving]
  - Hallucination [Recovering/Resolving]
  - Delirium [Recovering/Resolving]
  - Depressed level of consciousness [Recovering/Resolving]

NARRATIVE: CASE EVENT DATE: 20171020
